FAERS Safety Report 25389271 (Version 2)
Quarter: 2025Q4

REPORT INFORMATION
  Report Type: Spontaneous
  Country: US (occurrence: US)
  Receive Date: 20250603
  Receipt Date: 20251007
  Transmission Date: 20260118
  Serious: Yes (Hospitalization, Other)
  Sender: COOPERSURGICAL
  Company Number: US-COOPERSURGICAL, INC.-2025CPS004513

PATIENT
  Age: 37 Year
  Sex: Female
  Weight: 75.283 kg

DRUGS (1)
  1. PARAGARD T 380A [Suspect]
     Active Substance: COPPER
     Dosage: UNK
     Route: 015
     Dates: start: 20160212

REACTIONS (37)
  - Laparotomy [Recovered/Resolved]
  - Salpingo-oophorectomy unilateral [Recovered/Resolved]
  - Reproductive complication associated with device [Not Recovered/Not Resolved]
  - Ovarian cyst ruptured [Unknown]
  - Uterine leiomyoma [Unknown]
  - Surgery [Recovered/Resolved]
  - Colitis [Unknown]
  - Ileus [Unknown]
  - Pleural effusion [Unknown]
  - Pericardial effusion [Unknown]
  - Blood loss anaemia [Recovering/Resolving]
  - Device breakage [Not Recovered/Not Resolved]
  - Foreign body in reproductive tract [Not Recovered/Not Resolved]
  - Complication of device removal [Not Recovered/Not Resolved]
  - Embedded device [Not Recovered/Not Resolved]
  - Peritonitis [Unknown]
  - Uterine perforation [Unknown]
  - Tubo-ovarian abscess [Recovered/Resolved]
  - Sepsis [Recovered/Resolved]
  - Scar [Not Recovered/Not Resolved]
  - Emotional disorder [Unknown]
  - Leukocytosis [Recovering/Resolving]
  - Hypokalaemia [Recovered/Resolved]
  - Hyponatraemia [Unknown]
  - Lymphadenitis bacterial [Unknown]
  - Fibrin D dimer increased [Unknown]
  - Atelectasis [Unknown]
  - Microcytosis [Unknown]
  - Thrombocytosis [Recovering/Resolving]
  - Muscle spasms [Unknown]
  - Pain [Unknown]
  - Device dislocation [Not Recovered/Not Resolved]
  - Pelvic pain [Unknown]
  - Abdominal pain [Unknown]
  - Back pain [Unknown]
  - Nausea [Unknown]
  - Abdominal distension [Unknown]

NARRATIVE: CASE EVENT DATE: 20220601
